FAERS Safety Report 8663052 (Version 3)
Quarter: 2013Q1

REPORT INFORMATION
  Report Type: Spontaneous
  Country: CO (occurrence: CO)
  Receive Date: 20120713
  Receipt Date: 20130308
  Transmission Date: 20140127
  Serious: Yes (Hospitalization, Other)
  Sender: FDA-Public Use
  Company Number: CO-AMGEN-COLSP2012041907

PATIENT
  Age: 16 Year
  Sex: Female

DRUGS (1)
  1. ENBREL [Suspect]
     Indication: JUVENILE IDIOPATHIC ARTHRITIS
     Dosage: 50 MG, TWICE PER MONTH (EVERY 15 DAYS)
     Dates: start: 20120626

REACTIONS (4)
  - Delirium [Not Recovered/Not Resolved]
  - Pyrexia [Not Recovered/Not Resolved]
  - Coma [Not Recovered/Not Resolved]
  - Oral herpes [Not Recovered/Not Resolved]
